FAERS Safety Report 20405325 (Version 1)
Quarter: 2022Q1

REPORT INFORMATION
  Report Type: Spontaneous
  Country: US (occurrence: US)
  Receive Date: 20220131
  Receipt Date: 20220131
  Transmission Date: 20220424
  Serious: Yes (Other)
  Sender: FDA-Public Use
  Company Number: US-AMGEN-USASP2022011977

PATIENT
  Age: 67 Year
  Sex: Female
  Weight: 56.4 kg

DRUGS (3)
  1. MVASI [Suspect]
     Active Substance: BEVACIZUMAB-AWWB
     Indication: Non-small cell lung cancer
     Dosage: 850 MILLIGRAM
     Route: 065
     Dates: start: 20211210
  2. CARBOPLATIN [Concomitant]
     Active Substance: CARBOPLATIN
     Dosage: UNK
     Dates: start: 20211210
  3. PEMETREXED [Concomitant]
     Active Substance: PEMETREXED
     Dosage: UNK
     Dates: start: 20211210

REACTIONS (2)
  - Abscess oral [Unknown]
  - COVID-19 [Unknown]
